FAERS Safety Report 10363933 (Version 3)
Quarter: 2015Q3

REPORT INFORMATION
  Report Type: Spontaneous
  Country: US (occurrence: US)
  Receive Date: 20140805
  Receipt Date: 20150817
  Transmission Date: 20151125
  Serious: No
  Sender: FDA-Public Use
  Company Number: US-GILEAD-2014-0110704

PATIENT
  Age: 52 Year
  Sex: Male

DRUGS (2)
  1. LETAIRIS [Suspect]
     Active Substance: AMBRISENTAN
     Indication: PULMONARY ARTERIAL HYPERTENSION
     Dosage: 5 MG, QD
     Route: 065
     Dates: start: 20140603, end: 2014
  2. LETAIRIS [Suspect]
     Active Substance: AMBRISENTAN
     Dates: start: 20140604

REACTIONS (1)
  - Oedema [Unknown]

NARRATIVE: CASE EVENT DATE: 2014
